FAERS Safety Report 9557397 (Version 1)
Quarter: 2013Q3

REPORT INFORMATION
  Report Type: Spontaneous
  Country: US (occurrence: None)
  Receive Date: 20130724
  Receipt Date: 20130724
  Transmission Date: 20140515
  Serious: Yes (Other)
  Sender: FDA-Public Use
  Company Number: PHEH2013US006995

PATIENT
  Age: 59 Year
  Sex: Male

DRUGS (1)
  1. GILENYA (FINGOLIMOD) CAPSULE, 0.5MG [Suspect]
     Indication: MULTIPLE SCLEROSIS
     Route: 048
     Dates: start: 20130320

REACTIONS (5)
  - Dysphagia [None]
  - Epistaxis [None]
  - Oropharyngeal pain [None]
  - Pyrexia [None]
  - Dyspnoea [None]
